FAERS Safety Report 4946746-8 (Version None)
Quarter: 2006Q1

REPORT INFORMATION
  Report Type: 
  Country: None (occurrence: None)
  Receive Date: 20060317
  Receipt Date: 20050825
  Transmission Date: 20060701
  Serious: Yes (Death, Hospitalization, Other)
  Sender: FDA-Public Use
  Company Number: US-MERCK-0508USA04281

PATIENT
  Age: 78 Year
  Sex: Male

DRUGS (1)
  1. VIOXX [Suspect]
     Route: 048
     Dates: end: 20021120

REACTIONS (27)
  - ACUTE RESPIRATORY FAILURE [None]
  - ATRIAL FIBRILLATION [None]
  - BRADYCARDIA [None]
  - CARDIAC ARREST [None]
  - CEREBRAL ARTERY OCCLUSION [None]
  - CEREBROVASCULAR ACCIDENT [None]
  - CHOLANGITIS [None]
  - CONVULSION [None]
  - DEEP VEIN THROMBOSIS [None]
  - DIABETES MELLITUS NON-INSULIN-DEPENDENT [None]
  - GASTRIC ULCER [None]
  - GASTROINTESTINAL HAEMORRHAGE [None]
  - GOUT [None]
  - GRAND MAL CONVULSION [None]
  - HAEMORRHAGE [None]
  - HYPERTENSION [None]
  - HYPOTENSION [None]
  - INJURY [None]
  - PNEUMONIA [None]
  - PULMONARY EMBOLISM [None]
  - RENAL FAILURE CHRONIC [None]
  - RESPIRATORY ARREST [None]
  - RESPIRATORY DISTRESS [None]
  - SEPSIS [None]
  - STAPHYLOCOCCAL BACTERAEMIA [None]
  - ULCER [None]
  - VARICES OESOPHAGEAL [None]
